FAERS Safety Report 14082933 (Version 1)
Quarter: 2017Q4

REPORT INFORMATION
  Report Type: Spontaneous
  Country: FR (occurrence: FR)
  Receive Date: 20171012
  Receipt Date: 20171012
  Transmission Date: 20180321
  Serious: Yes (Other)
  Sender: FDA-Public Use
  Company Number: FR-MYLANLABS-2017M1062953

PATIENT
  Sex: Female

DRUGS (1)
  1. LAMOTRIGINE MYLAN [Suspect]
     Active Substance: LAMOTRIGINE
     Indication: PRODUCT USED FOR UNKNOWN INDICATION
     Dosage: 2 DF, BID

REACTIONS (7)
  - Headache [Unknown]
  - Suicidal ideation [Unknown]
  - Insomnia [Unknown]
  - Chills [Unknown]
  - Vomiting [Unknown]
  - Tremor [Unknown]
  - Nightmare [Unknown]

NARRATIVE: CASE EVENT DATE: 2017
